FAERS Safety Report 5699803-5 (Version None)
Quarter: 2008Q2

REPORT INFORMATION
  Report Type: 
  Country: None (occurrence: None)
  Receive Date: 20080407
  Receipt Date: 20080321
  Transmission Date: 20081010
  Serious: Yes (Hospitalization)
  Sender: FDA-Public Use
  Company Number: FACT0800064

PATIENT
  Sex: Male

DRUGS (1)
  1. FACTIVE [Suspect]
     Indication: DRUG USE FOR UNKNOWN INDICATION
     Dates: start: 20080301, end: 20080301

REACTIONS (1)
  - HAEMOLYTIC ANAEMIA [None]
